FAERS Safety Report 10443701 (Version 1)
Quarter: 2014Q3

REPORT INFORMATION
  Report Type: Spontaneous
  Country: US (occurrence: None)
  Receive Date: 20140909
  Receipt Date: 20140909
  Transmission Date: 20150326
  Serious: No
  Sender: FDA-Public Use
  Company Number: None

PATIENT
  Age: 57 Year
  Sex: Female
  Weight: 42.18 kg

DRUGS (1)
  1. EXJADE 250 MG NOVARTIS [Suspect]
     Active Substance: DEFERASIROX
     Indication: IRON OVERLOAD
     Dosage: 3 PILLS QD ORAL
     Route: 048

REACTIONS (1)
  - Diarrhoea [None]
